FAERS Safety Report 14606575 (Version 2)
Quarter: 2018Q1

REPORT INFORMATION
  Report Type: Report from Study
  Country: CA (occurrence: CA)
  Receive Date: 20180307
  Receipt Date: 20180309
  Transmission Date: 20180509
  Serious: Yes (Other)
  Sender: FDA-Public Use
  Company Number: CA-ROCHE-2082799

PATIENT
  Age: 23 Year
  Sex: Female

DRUGS (4)
  1. OCREVUS [Suspect]
     Active Substance: OCRELIZUMAB
     Indication: RELAPSING-REMITTING MULTIPLE SCLEROSIS
     Dosage: SECOND DOSE ON 26/FEB/2018
     Route: 042
     Dates: start: 20180212
  2. LYRICA [Concomitant]
     Active Substance: PREGABALIN
     Indication: PAIN
  3. DILAUDID [Concomitant]
     Active Substance: HYDROMORPHONE HYDROCHLORIDE
  4. MORPHINE [Concomitant]
     Active Substance: MORPHINE

REACTIONS (8)
  - Musculoskeletal stiffness [Not Recovered/Not Resolved]
  - Facial pain [Unknown]
  - Fatigue [Recovering/Resolving]
  - Headache [Unknown]
  - Pain in extremity [Recovering/Resolving]
  - Infusion related reaction [Unknown]
  - Back pain [Unknown]
  - Hypoaesthesia [Unknown]

NARRATIVE: CASE EVENT DATE: 20180226
